FAERS Safety Report 7645089-1 (Version None)
Quarter: 2011Q3

REPORT INFORMATION
  Report Type: 
  Country: None (occurrence: None)
  Receive Date: 20110729
  Receipt Date: 20110721
  Transmission Date: 20111222
  Serious: Yes (Hospitalization, Other)
  Sender: FDA-Public Use
  Company Number: PHEH2009US09113

PATIENT
  Sex: Male

DRUGS (28)
  1. COUMADIN [Concomitant]
  2. PLAVIX [Concomitant]
  3. LOPRESSOR [Concomitant]
  4. DEXAMETHASONE [Concomitant]
  5. MIRALAX [Concomitant]
  6. HYDROCHLOROTHIAZIDE [Concomitant]
  7. CIPROFLOXACIN [Concomitant]
  8. THALIDOMIDE [Concomitant]
     Dosage: 100 MG, QHS
     Route: 048
  9. ZOMETA [Suspect]
     Dates: start: 20040601
  10. ASPIRIN [Concomitant]
  11. GLIPIZIDE [Concomitant]
  12. ATROVENT [Concomitant]
  13. DAPTOMYCIN [Concomitant]
  14. ALTACE [Concomitant]
  15. INSULIN [Concomitant]
  16. DOXYCYCLINE [Concomitant]
  17. COLACE [Concomitant]
  18. ZOSYN [Concomitant]
  19. PROVENTIL [Concomitant]
  20. LEVAQUIN [Concomitant]
  21. ZOMETA [Suspect]
     Dosage: 4 MG, ONCE EVERY 3 MONTHS
     Dates: start: 20060322
  22. VELCADE [Concomitant]
  23. REVLIMID [Concomitant]
  24. LACTINEX [Concomitant]
  25. METOPROLOL TARTRATE [Concomitant]
  26. ZOMETA [Suspect]
     Dosage: 4 MG, QMO
     Route: 042
  27. LIPITOR [Concomitant]
  28. PENICILLIN VK [Concomitant]

REACTIONS (79)
  - OSTEONECROSIS OF JAW [None]
  - DEFORMITY [None]
  - INJURY [None]
  - HYPOPNOEA [None]
  - PAIN IN EXTREMITY [None]
  - OSTEOARTHROPATHY [None]
  - ACTINIC KERATOSIS [None]
  - ROTATOR CUFF SYNDROME [None]
  - HYPERLIPIDAEMIA [None]
  - URINARY TRACT INFECTION [None]
  - ASTHENIA [None]
  - BLOOD CHOLESTEROL INCREASED [None]
  - SPINAL OSTEOARTHRITIS [None]
  - FALL [None]
  - ANXIETY [None]
  - PERIODONTITIS [None]
  - HYPERGLYCAEMIA [None]
  - HYPERTENSION [None]
  - OEDEMA PERIPHERAL [None]
  - HYPOKALAEMIA [None]
  - ORTHOSTATIC HYPOTENSION [None]
  - ATRIAL FIBRILLATION [None]
  - MELANOCYTIC NAEVUS [None]
  - GAIT DISTURBANCE [None]
  - LUMBAR VERTEBRAL FRACTURE [None]
  - RASH [None]
  - BRONCHITIS [None]
  - BACK PAIN [None]
  - HYPERPLASIA [None]
  - DECREASED APPETITE [None]
  - LIGAMENT SPRAIN [None]
  - TROPONIN INCREASED [None]
  - PNEUMONIA [None]
  - EMOTIONAL DISTRESS [None]
  - RHINITIS ALLERGIC [None]
  - OCULAR HYPERAEMIA [None]
  - DIARRHOEA [None]
  - NEOPLASM MALIGNANT [None]
  - BURSITIS [None]
  - NASAL SEPTUM DEVIATION [None]
  - FAILURE TO THRIVE [None]
  - APNOEA [None]
  - ANAEMIA [None]
  - BLEPHARITIS [None]
  - SYNCOPE [None]
  - HYPOTENSION [None]
  - WEIGHT DECREASED [None]
  - INCONTINENCE [None]
  - PLEURAL EFFUSION [None]
  - BONE LESION [None]
  - PAIN [None]
  - TYPE 2 DIABETES MELLITUS [None]
  - TYPE 1 DIABETES MELLITUS [None]
  - METASTATIC MALIGNANT MELANOMA [None]
  - SQUAMOUS CELL CARCINOMA [None]
  - GINGIVITIS [None]
  - THORACIC VERTEBRAL FRACTURE [None]
  - ANGINA PECTORIS [None]
  - CORONARY ARTERY DISEASE [None]
  - ARTERIOSCLEROSIS CORONARY ARTERY [None]
  - UPPER RESPIRATORY TRACT INFECTION [None]
  - CONJUNCTIVITIS [None]
  - ARTHRALGIA [None]
  - MUSCLE STRAIN [None]
  - MELAENA [None]
  - BASAL CELL CARCINOMA [None]
  - BUNDLE BRANCH BLOCK BILATERAL [None]
  - INTERVERTEBRAL DISC DEGENERATION [None]
  - SPINAL COLUMN STENOSIS [None]
  - INFECTION [None]
  - NEUROPATHY PERIPHERAL [None]
  - THROMBOCYTOPENIA [None]
  - PATHOLOGICAL FRACTURE [None]
  - PYURIA [None]
  - LENTIGO [None]
  - CARDIAC FAILURE CONGESTIVE [None]
  - CONSTIPATION [None]
  - PANCYTOPENIA [None]
  - ALTERED STATE OF CONSCIOUSNESS [None]
